FAERS Safety Report 18009385 (Version 2)
Quarter: 2021Q2

REPORT INFORMATION
  Report Type: Report from Study
  Country: FR (occurrence: FR)
  Receive Date: 20200710
  Receipt Date: 20210428
  Transmission Date: 20210717
  Serious: Yes (Other)
  Sender: FDA-Public Use
  Company Number: FR-INCYTE CORPORATION-2019IN005486

PATIENT

DRUGS (15)
  1. JAKAVI [Suspect]
     Active Substance: RUXOLITINIB
     Dosage: 30 OT
     Route: 048
     Dates: start: 201812, end: 20190424
  2. JAKAVI [Suspect]
     Active Substance: RUXOLITINIB
     Dosage: 20 OT
     Route: 048
     Dates: start: 20190815, end: 20190829
  3. KARDEGIC [Concomitant]
     Active Substance: ASPIRIN DL-LYSINE
     Indication: POLYCYTHAEMIA VERA
     Dosage: 75 OT
     Route: 065
     Dates: start: 20090423
  4. ROFERON?A [Concomitant]
     Active Substance: INTERFERON ALFA-2A
     Indication: POLYCYTHAEMIA VERA
     Dosage: 3000000 OT
     Route: 065
  5. BINOCRIT [Concomitant]
     Active Substance: ERYTHROPOIETIN
     Indication: ANAEMIA PROPHYLAXIS
     Dosage: 3000 OT
     Route: 065
     Dates: start: 20200127
  6. JAKAVI [Suspect]
     Active Substance: RUXOLITINIB
     Indication: POLYCYTHAEMIA VERA
     Dosage: 20 OT
     Route: 048
     Dates: start: 20180412, end: 20180620
  7. VERCYTE [Concomitant]
     Active Substance: PIPOBROMAN
     Indication: POLYCYTHAEMIA VERA
     Dosage: UNK
     Route: 065
     Dates: start: 20140108, end: 20140220
  8. JAKAVI [Suspect]
     Active Substance: RUXOLITINIB
     Dosage: 40 OT
     Route: 065
     Dates: start: 20191205
  9. JAKAVI [Suspect]
     Active Substance: RUXOLITINIB
     Dosage: 20 OT
     Route: 048
     Dates: start: 20191008, end: 20191204
  10. JAKAVI [Suspect]
     Active Substance: RUXOLITINIB
     Dosage: 30 OT
     Route: 048
     Dates: start: 20180621, end: 201812
  11. JAKAVI [Suspect]
     Active Substance: RUXOLITINIB
     Dosage: 10 OT
     Route: 048
     Dates: start: 20190830, end: 20190930
  12. ALLOPURINOL. [Concomitant]
     Active Substance: ALLOPURINOL
     Indication: ARTHROPATHY
     Dosage: 200 OT
     Route: 065
     Dates: start: 2019
  13. COLCHICINE;PROBENECID [Concomitant]
     Indication: ARTHROPATHY
     Dosage: 0.5 OT
     Route: 065
     Dates: start: 2019
  14. JAKAVI [Suspect]
     Active Substance: RUXOLITINIB
     Dosage: 25 OT
     Route: 048
     Dates: start: 20190425, end: 20190814
  15. CORTANCYL [Concomitant]
     Active Substance: PREDNISONE
     Indication: ALAGILLE SYNDROME
     Dosage: 20 OT
     Route: 065
     Dates: start: 20191008

REACTIONS (10)
  - Sensorimotor disorder [Recovered/Resolved]
  - Oral herpes [Not Recovered/Not Resolved]
  - Spinal pain [Not Recovered/Not Resolved]
  - Gout [Recovered/Resolved]
  - Motor dysfunction [Recovered/Resolved]
  - Anal ulcer [Recovered/Resolved]
  - Contusion [Recovered/Resolved]
  - Headache [Recovered/Resolved]
  - Arthralgia [Not Recovered/Not Resolved]
  - Hyperleukocytosis [Not Recovered/Not Resolved]

NARRATIVE: CASE EVENT DATE: 2018
